FAERS Safety Report 8785893 (Version 2)
Quarter: 2012Q4

REPORT INFORMATION
  Report Type: 
  Country: NL (occurrence: NL)
  Receive Date: 20120914
  Receipt Date: 20121219
  Transmission Date: 20130627
  Serious: Yes (Hospitalization, Disabling)
  Sender: FDA-Public Use
  Company Number: PHHY2012NL079736

PATIENT
  Age: 70 Year
  Sex: Male
  Weight: 90 kg

DRUGS (4)
  1. ZOMETA [Suspect]
     Indication: PROSTATE CANCER METASTATIC
     Dosage: 4mg/100ml solution for iv infusion (over 20min) once per 28 days
     Route: 042
     Dates: start: 20120822
  2. LUCRIN [Concomitant]
     Dosage: UNK UKN, UNK
  3. TAMSULOSINE [Concomitant]
     Dosage: UNK UKN, UNK
  4. ANANDRON [Concomitant]
     Dosage: UNK UKN, UNK

REACTIONS (1)
  - Hip fracture [Recovered/Resolved]
